FAERS Safety Report 4591119-3 (Version None)
Quarter: 2005Q1

REPORT INFORMATION
  Report Type: 
  Country: None (occurrence: None)
  Receive Date: 20050222
  Receipt Date: 20050210
  Transmission Date: 20050727
  Serious: Yes (Hospitalization)
  Sender: FDA-Public Use
  Company Number: 2005-125172-NL

PATIENT
  Age: 70 Year
  Sex: Female

DRUGS (5)
  1. DANAPAROID SODIUM [Suspect]
     Indication: THROMBOSIS
     Dosage: 2500 ANTI_XA INTRAVENOUS (NOS)
     Route: 042
     Dates: start: 20050120, end: 20050124
  2. HYDROXYZINE HYDROCHLORIDE [Concomitant]
  3. CETIRIZINE HCL [Concomitant]
  4. ENOXAPARIN SODIUM [Concomitant]
  5. PROPHYLACTIC MEASURE [Concomitant]

REACTIONS (1)
  - ECZEMA [None]
